FAERS Safety Report 5203777-0 (Version None)
Quarter: 2007Q1

REPORT INFORMATION
  Report Type: 
  Country: None (occurrence: None)
  Receive Date: 20070109
  Receipt Date: 20070109
  Transmission Date: 20070707
  Serious: Yes (Other)
  Sender: FDA-Public Use
  Company Number: None

PATIENT
  Age: 58 Year
  Sex: Male
  Weight: 100 kg

DRUGS (1)
  1. ENULOSE [Suspect]
     Indication: LIVER DISORDER
     Dosage: 2 TABLESPOONS 4X DAILY PO
     Route: 048
     Dates: start: 20050601, end: 20060107

REACTIONS (2)
  - DRUG INEFFECTIVE [None]
  - INSOMNIA [None]
